FAERS Safety Report 7757374-3 (Version None)
Quarter: 2011Q3

REPORT INFORMATION
  Report Type: 
  Country: None (occurrence: None)
  Receive Date: 20110916
  Receipt Date: 20110907
  Transmission Date: 20111222
  Serious: Yes (Other)
  Sender: FDA-Public Use
  Company Number: US-BAYER-200829333NA

PATIENT
  Sex: Male
  Weight: 82 kg

DRUGS (48)
  1. MAGNEVIST [Suspect]
     Indication: ANGIOPLASTY
     Dosage: UNK
     Dates: start: 20050304, end: 20050304
  2. OMNISCAN [Suspect]
     Indication: ANGIOGRAM
     Dosage: UNK
     Dates: start: 20040504, end: 20040504
  3. VISIPAQUE [Suspect]
     Indication: ANGIOPLASTY
     Dosage: 100 ML, UNK
     Dates: start: 20050315
  4. ASPIRIN [Concomitant]
  5. COZAAR [Concomitant]
     Dosage: 50 MG, QD
  6. RANEXA [Concomitant]
     Dosage: 500 MG, QD
  7. MULTIHANCE [Suspect]
     Indication: NUCLEAR MAGNETIC RESONANCE IMAGING
  8. PROHANCE [Suspect]
     Indication: NUCLEAR MAGNETIC RESONANCE IMAGING
     Dosage: 19 ML, UNK
     Dates: start: 20030508
  9. PLAVIX [Concomitant]
     Dosage: DAILY DOSE 75 MG
  10. ARANESP [Concomitant]
  11. ASPIRIN [Concomitant]
     Dosage: 81 MG, QD
  12. GABAPENTIN [Concomitant]
     Dosage: 300 MG, QD
  13. AMBIEN [Concomitant]
  14. GADOLINIUM IN UNSPECIFIED DRUG [Suspect]
     Indication: NUCLEAR MAGNETIC RESONANCE IMAGING
     Dates: start: 20050304, end: 20050304
  15. CONTRAST MEDIA [Suspect]
     Dosage: UNK
     Dates: start: 20001026
  16. NEPHROVITE [VIT C,VIT H,B5,B12,B9,B3,B6,B2,B1 HCL] [Concomitant]
  17. ALLOPURINOL [Concomitant]
  18. LASIX [Concomitant]
     Dosage: 40 MG, BID
  19. METOPROLOL TARTRATE [Concomitant]
  20. PROHANCE [Suspect]
     Dosage: 19 UNK, UNK
     Dates: start: 20031116
  21. PROGRAF [Concomitant]
     Dosage: 0.5 MG, BID
  22. FLOMAX [Concomitant]
  23. AVAPRO [Concomitant]
  24. GADOLINIUM IN UNSPECIFIED DRUG [Suspect]
     Dosage: UNK
     Dates: start: 20050315
  25. CONTRAST MEDIA [Suspect]
     Indication: NUCLEAR MAGNETIC RESONANCE IMAGING
     Dosage: UNK
     Dates: start: 19901213
  26. CONTRAST MEDIA [Suspect]
     Dosage: UNK
     Dates: start: 20010904
  27. MYCOPHENOLATE MOFETIL (CELLCEPT) [Concomitant]
     Dosage: DAILY DOSE 500 MG
  28. IMDUR [Concomitant]
  29. IRON SUPPLEMENT [Concomitant]
  30. DEMADEX [Concomitant]
  31. OMNISCAN [Suspect]
     Indication: NUCLEAR MAGNETIC RESONANCE IMAGING
     Dosage: 20 ML, UNK
     Dates: start: 20030402, end: 20110402
  32. OPTIMARK [Suspect]
     Indication: NUCLEAR MAGNETIC RESONANCE IMAGING
  33. GADOLINIUM IN UNSPECIFIED DRUG [Suspect]
     Dosage: UNK
     Dates: start: 20050304
  34. RENAGEL [Concomitant]
  35. NOVOLOG MIX 70/30 [Concomitant]
  36. DILTIAZEM [Concomitant]
  37. PREDNISONE [Concomitant]
     Dosage: DAILY DOSE 5 MG
  38. LIPITOR [Concomitant]
     Dosage: 40 MG, QD
  39. COREG [Concomitant]
     Dosage: 3.125 MG, BID
  40. PIOGLITAZONE [Concomitant]
     Dosage: 45 MG, QD
  41. LOPRESSOR [Concomitant]
  42. STARLIX [Concomitant]
  43. MAGNEVIST [Suspect]
     Indication: NUCLEAR MAGNETIC RESONANCE IMAGING
     Dosage: UNK ML, UNK
     Dates: start: 20031010
  44. MAGNEVIST [Suspect]
     Indication: ANGIOGRAM
     Dosage: UNK
     Dates: start: 20040504, end: 20040504
  45. NEURONTIN [Concomitant]
  46. JANUVIA [Concomitant]
     Dosage: 100 MG, QD
  47. DIOVAN [Concomitant]
  48. INDERAL [Concomitant]

REACTIONS (10)
  - EMOTIONAL DISTRESS [None]
  - PAIN [None]
  - MUSCULAR WEAKNESS [None]
  - BONE PAIN [None]
  - INJURY [None]
  - NEPHROGENIC SYSTEMIC FIBROSIS [None]
  - GENERAL PHYSICAL HEALTH DETERIORATION [None]
  - MOBILITY DECREASED [None]
  - RENAL FAILURE CHRONIC [None]
  - ANXIETY [None]
